FAERS Safety Report 17388844 (Version 3)
Quarter: 2020Q1

REPORT INFORMATION
  Report Type: Report from Study
  Country: None (occurrence: DE)
  Receive Date: 20200206
  Receipt Date: 20200303
  Transmission Date: 20200409
  Serious: Yes (Death, Hospitalization, Other)
  Sender: FDA-Public Use
  Company Number: DE-ABBVIE-20K-062-3264257-00

PATIENT
  Age: 65 Year
  Sex: Female

DRUGS (4)
  1. ROACTEMRA [Concomitant]
     Active Substance: TOCILIZUMAB
     Dates: start: 201805, end: 201807
  2. ORENCIA [Concomitant]
     Active Substance: ABATACEPT
     Indication: PRODUCT USED FOR UNKNOWN INDICATION
     Dates: start: 201610, end: 201701
  3. HUMIRA [Suspect]
     Active Substance: ADALIMUMAB
     Indication: RHEUMATOID ARTHRITIS
     Route: 058
     Dates: start: 201604, end: 201604
  4. ROACTEMRA [Concomitant]
     Active Substance: TOCILIZUMAB
     Indication: PRODUCT USED FOR UNKNOWN INDICATION
     Dates: start: 201702, end: 201704

REACTIONS (6)
  - Chronic kidney disease [Fatal]
  - Post procedural myocardial infarction [Unknown]
  - Coronary angioplasty [Unknown]
  - Pneumonia [Unknown]
  - Splenic infarction [Unknown]
  - Ischaemic cardiomyopathy [Fatal]

NARRATIVE: CASE EVENT DATE: 201811
